FAERS Safety Report 8756269 (Version 2)
Quarter: 2012Q4

REPORT INFORMATION
  Report Type: Report from Study
  Country: AU (occurrence: AU)
  Receive Date: 20120828
  Receipt Date: 20121012
  Transmission Date: 20130627
  Serious: Yes (Hospitalization)
  Sender: FDA-Public Use
  Company Number: PHHO2012AU012299

PATIENT
  Sex: Female

DRUGS (8)
  1. AFINITOR [Suspect]
     Indication: RENAL CELL CARCINOMA
     Dosage: 10 mg, QD
     Route: 048
     Dates: end: 20120730
  2. SUNITINIB MALATE [Concomitant]
     Indication: RENAL CELL CARCINOMA
     Dosage: 50 mg, QD
  3. KARVEZIDE [Concomitant]
     Dosage: 300 mg, QD
     Route: 048
     Dates: start: 1992
  4. THYROXINE [Concomitant]
     Dosage: 150 mg, QD
     Dates: start: 1982
  5. OXYNORM [Concomitant]
     Indication: RENAL CELL CARCINOMA
     Dosage: 5 mg, PRN
     Route: 048
     Dates: start: 20120417
  6. TARGIN [Concomitant]
     Dosage: 10 mg, TID
     Route: 048
     Dates: start: 201206
  7. PARACETAMOL [Concomitant]
     Dosage: 1 g, BID
     Dates: start: 201208
  8. MAXOLON [Concomitant]
     Dosage: 10 mg, TID
     Route: 048
     Dates: start: 201206

REACTIONS (1)
  - Pulmonary hypertension [Recovered/Resolved with Sequelae]
